FAERS Safety Report 9827860 (Version 1)
Quarter: 2014Q1

REPORT INFORMATION
  Report Type: Other
  Country: US (occurrence: US)
  Receive Date: 20140117
  Receipt Date: 20140117
  Transmission Date: 20141002
  Serious: Yes (Death)
  Sender: FDA-Public Use
  Company Number: US-LEHIGH_VALLEY-USA-POI0580201400028

PATIENT
  Age: 48 Year
  Sex: Female

DRUGS (6)
  1. OXYCODONE HCL CAPSULES [Suspect]
     Dates: end: 2012
  2. MORPHINE (EXTENDED RELEASE) [Suspect]
     Dates: end: 2012
  3. METHADONE [Suspect]
     Dates: end: 2012
  4. ALPRAZOLAM [Suspect]
     Dates: end: 2012
  5. PHENTERMINE [Suspect]
     Dates: end: 2012
  6. CITALOPRAM [Suspect]
     Dates: end: 2012

REACTIONS (3)
  - Completed suicide [None]
  - Cardiac arrest [None]
  - Respiratory arrest [None]
